FAERS Safety Report 9342043 (Version 1)
Quarter: 2013Q2

REPORT INFORMATION
  Report Type: Spontaneous
  Country: JP (occurrence: JP)
  Receive Date: 20130611
  Receipt Date: 20130611
  Transmission Date: 20140414
  Serious: Yes (Death)
  Sender: FDA-Public Use
  Company Number: JP-SUCAMPO PHARMA AMERICAS, INC-SPI201300390

PATIENT
  Age: 72 Year
  Sex: Male
  Weight: 45.5 kg

DRUGS (8)
  1. AMITIZA [Suspect]
     Indication: CONSTIPATION
     Dosage: 24 MCG, BID
     Route: 048
     Dates: start: 20130423, end: 20130527
  2. SENNARIDE [Concomitant]
     Indication: CONSTIPATION
     Dosage: 24 MG, PRN
     Route: 048
     Dates: start: 20130423
  3. SERENAL [Concomitant]
     Dosage: 10 MG, TID
     Route: 048
  4. HALRACK [Concomitant]
     Dosage: 0.25 MG, QD
     Route: 048
  5. FLUNITRAZEPAM [Concomitant]
     Indication: INSOMNIA
     Dosage: 2 MG, QD
     Route: 048
  6. ATORVASTATIN [Concomitant]
     Indication: HYPERLIPIDAEMIA
     Dosage: 5 MG, QD
     Route: 048
  7. TETRAMIDE [Concomitant]
     Indication: DEPRESSION
     Dosage: 10 MG, QD
     Route: 048
  8. MASHININGAN [Concomitant]
     Indication: CONSTIPATION
     Dosage: 2.0 G, QD
     Route: 048

REACTIONS (1)
  - Death [Fatal]
